FAERS Safety Report 4270920-X (Version None)
Quarter: 2004Q1

REPORT INFORMATION
  Report Type: 
  Country: None (occurrence: None)
  Receive Date: 20040113
  Receipt Date: 20031231
  Transmission Date: 20041129
  Serious: Yes (Hospitalization)
  Sender: FDA-Public Use
  Company Number: 04P-056-0246150-00

PATIENT
  Age: 65 Year
  Sex: Female

DRUGS (12)
  1. TRICOR [Suspect]
     Indication: HYPERCHOLESTEROLAEMIA
     Dosage: 200 MG, 1 IN 1 D, ORAL
     Route: 048
     Dates: end: 20030712
  2. DESLORATADINE [Concomitant]
  3. ZOLPIDEM TARTRATE [Concomitant]
  4. ACENOCOUMAROL [Concomitant]
  5. CAPIVEN [Concomitant]
  6. OXAZEPAM [Concomitant]
  7. ACARBOSE [Concomitant]
  8. AMLODIPINE BESYLATE [Concomitant]
  9. GLICLAZIDE [Concomitant]
  10. RAMIPRIL [Concomitant]
  11. BROMAZEPAM [Concomitant]
  12. FUROSEMIDE [Concomitant]

REACTIONS (4)
  - BACK PAIN [None]
  - INTERNATIONAL NORMALISED RATIO INCREASED [None]
  - MOBILITY DECREASED [None]
  - MUSCLE HAEMORRHAGE [None]
